FAERS Safety Report 24768725 (Version 2)
Quarter: 2024Q4

REPORT INFORMATION
  Report Type: Report from Study
  Country: US (occurrence: US)
  Receive Date: 20241224
  Receipt Date: 20241231
  Transmission Date: 20250114
  Serious: Yes (Hospitalization, Other)
  Sender: BIOGEN
  Company Number: US-BIOGEN-2024BI01294563

PATIENT
  Sex: Female

DRUGS (1)
  1. SKYCLARYS [Suspect]
     Active Substance: OMAVELOXOLONE
     Indication: Friedreich^s ataxia
     Dosage: 50MG, 3 CAPSULES ONCE DAILY
     Route: 050
     Dates: start: 20240301

REACTIONS (9)
  - Palpitations [Unknown]
  - Troponin increased [Unknown]
  - Lower limb fracture [Unknown]
  - Fall [Recovered/Resolved]
  - Gait inability [Unknown]
  - Visual impairment [Unknown]
  - Hypoacusis [Unknown]
  - Blood cholesterol increased [Unknown]
  - Diarrhoea [Unknown]
